FAERS Safety Report 24028962 (Version 2)
Quarter: 2024Q3

REPORT INFORMATION
  Report Type: Spontaneous
  Country: US (occurrence: US)
  Receive Date: 20240628
  Receipt Date: 20240704
  Transmission Date: 20241016
  Serious: No
  Sender: AMGEN
  Company Number: US-AMGEN-USASP2024125305

PATIENT

DRUGS (1)
  1. PROLIA [Suspect]
     Active Substance: DENOSUMAB
     Indication: Product used for unknown indication
     Dosage: UNK
     Route: 065
     Dates: start: 20240611

REACTIONS (12)
  - Hypersensitivity [Recovered/Resolved]
  - Bone pain [Unknown]
  - Migraine [Recovered/Resolved]
  - Nausea [Unknown]
  - Body temperature abnormal [Not Recovered/Not Resolved]
  - Muscle spasms [Recovered/Resolved]
  - Night sweats [Not Recovered/Not Resolved]
  - Hot flush [Unknown]
  - Chills [Unknown]
  - Fatigue [Unknown]
  - Feeling abnormal [Unknown]
  - Histamine abnormal [Unknown]

NARRATIVE: CASE EVENT DATE: 20240101
